FAERS Safety Report 16748711 (Version 1)
Quarter: 2019Q3

REPORT INFORMATION
  Report Type: Spontaneous
  Country: CA (occurrence: CA)
  Receive Date: 20190828
  Receipt Date: 20190828
  Transmission Date: 20191005
  Serious: Yes (Other)
  Sender: FDA-Public Use
  Company Number: CA-TEVA-2019-CA-1097884

PATIENT
  Age: 60 Year
  Sex: Male

DRUGS (4)
  1. ARAVA [Concomitant]
     Active Substance: LEFLUNOMIDE
     Dosage: 20 MILLIGRAM DAILY;
     Route: 065
  2. MELOXICAM. [Concomitant]
     Active Substance: MELOXICAM
     Route: 065
  3. PREDNISONE. [Concomitant]
     Active Substance: PREDNISONE
     Dosage: 5 MILLIGRAM DAILY;
     Route: 065
  4. METHOTREXATE. [Suspect]
     Active Substance: METHOTREXATE
     Indication: PRODUCT USED FOR UNKNOWN INDICATION
     Route: 065

REACTIONS (16)
  - Blood cholesterol abnormal [Unknown]
  - Drug hypersensitivity [Unknown]
  - Dyspnoea [Unknown]
  - Grip strength decreased [Unknown]
  - Neuropathy peripheral [Unknown]
  - Pain [Unknown]
  - Spinal stenosis [Unknown]
  - Burning sensation [Unknown]
  - Peroneal nerve palsy [Unknown]
  - Finger deformity [Unknown]
  - Memory impairment [Unknown]
  - Arthralgia [Unknown]
  - Fatigue [Unknown]
  - Intervertebral disc degeneration [Unknown]
  - Impaired healing [Unknown]
  - Musculoskeletal stiffness [Unknown]
